FAERS Safety Report 9580177 (Version 1)
Quarter: 2013Q3

REPORT INFORMATION
  Report Type: Spontaneous
  Country: US (occurrence: None)
  Receive Date: 20130916
  Receipt Date: 20130916
  Transmission Date: 20140515
  Serious: Yes (Other)
  Sender: FDA-Public Use
  Company Number: JPI-P-031416

PATIENT
  Age: 44 Year
  Sex: Female
  Weight: 47.63 kg

DRUGS (9)
  1. XYREM (500 MILLIGRAM/MILLILITERS, SOLUTION) (SODIUM OXYBATE) [Suspect]
     Indication: CATAPLEXY
     Route: 048
     Dates: start: 20121121
  2. ATENOLOL [Concomitant]
  3. ARMODAFINIL [Concomitant]
  4. LANSOPRAZOLE [Concomitant]
  5. CETIRIZINE [Concomitant]
  6. IBUPROFEN [Concomitant]
  7. MULTIVITAMIN [Concomitant]
  8. FIBER TRACE [Concomitant]
  9. HYDROCORTISONE [Concomitant]

REACTIONS (2)
  - Depression [None]
  - Anxiety [None]
